FAERS Safety Report 17484228 (Version 1)
Quarter: 2020Q1

REPORT INFORMATION
  Report Type: Spontaneous
  Country: US (occurrence: US)
  Receive Date: 20200302
  Receipt Date: 20200302
  Transmission Date: 20200409
  Serious: No
  Sender: FDA-Public Use
  Company Number: US-ASTRAZENECA-2020SE28088

PATIENT
  Sex: Male
  Weight: 106.6 kg

DRUGS (7)
  1. DOXICYCLINE MONO [Concomitant]
     Route: 048
     Dates: start: 2017
  2. LISINOPRIL. [Suspect]
     Active Substance: LISINOPRIL
     Route: 048
  3. LOVASTATIN. [Concomitant]
     Active Substance: LOVASTATIN
     Route: 065
  4. AMLODIPINE BESALYTE [Concomitant]
     Route: 065
  5. BYDUREON [Suspect]
     Active Substance: EXENATIDE
     Indication: TYPE 2 DIABETES MELLITUS
     Route: 058
     Dates: start: 2017
  6. TADALAFIL. [Concomitant]
     Active Substance: TADALAFIL
     Dosage: 20.0MG UNKNOWN
     Route: 065
     Dates: start: 2017
  7. METOPROLOL SUCCINATE. [Suspect]
     Active Substance: METOPROLOL SUCCINATE
     Route: 048
     Dates: start: 1997

REACTIONS (8)
  - Acne [Unknown]
  - Hypertension [Unknown]
  - Erectile dysfunction [Unknown]
  - Type 2 diabetes mellitus [Unknown]
  - LDL/HDL ratio increased [Unknown]
  - Device defective [Unknown]
  - Injection site haemorrhage [Unknown]
  - Product dose omission [Unknown]
